FAERS Safety Report 4498740-1 (Version None)
Quarter: 2004Q3

REPORT INFORMATION
  Report Type: 
  Country: None (occurrence: None)
  Receive Date: 20040927
  Receipt Date: 20040617
  Transmission Date: 20050211
  Serious: No
  Sender: FDA-Public Use
  Company Number: USA040670444

PATIENT
  Age: 64 Year
  Sex: Female

DRUGS (3)
  1. STRATTERA [Suspect]
     Indication: ATTENTION DEFICIT/HYPERACTIVITY DISORDER
     Dosage: 60 MG DAY
     Dates: start: 20040610
  2. NEURONTIN [Concomitant]
  3. PAXIL (PAROXETINE HYDROCHLOIRIDE) [Concomitant]

REACTIONS (2)
  - FLATULENCE [None]
  - TREMOR [None]
